FAERS Safety Report 16362058 (Version 1)
Quarter: 2019Q2

REPORT INFORMATION
  Report Type: Spontaneous
  Country: US (occurrence: US)
  Receive Date: 20190528
  Receipt Date: 20190528
  Transmission Date: 20190711
  Serious: No
  Sender: FDA-Public Use
  Company Number: US-PFIZER INC-2019225312

PATIENT
  Age: 58 Year
  Sex: Female
  Weight: 66.77 kg

DRUGS (1)
  1. ADVIL LIQUI-GELS [Suspect]
     Active Substance: IBUPROFEN
     Dosage: 200 MG, UNK

REACTIONS (3)
  - Poor quality product administered [Unknown]
  - Dysgeusia [Unknown]
  - Product taste abnormal [Unknown]
